FAERS Safety Report 23401890 (Version 1)
Quarter: 2024Q1

REPORT INFORMATION
  Report Type: Spontaneous
  Country: US (occurrence: US)
  Receive Date: 20240115
  Receipt Date: 20240115
  Transmission Date: 20240409
  Serious: No
  Sender: FDA-Public Use
  Company Number: US-BRISTOL-MYERS SQUIBB COMPANY-2024-007232

PATIENT
  Age: 77 Year
  Sex: Female
  Weight: 44.45 kg

DRUGS (1)
  1. REVLIMID [Suspect]
     Active Substance: LENALIDOMIDE
     Indication: Plasma cell myeloma
     Dosage: FREQUENCY: 21D OF 35DAYS.
     Route: 048
     Dates: start: 20231101

REACTIONS (4)
  - Nausea [Unknown]
  - Fatigue [Unknown]
  - Dry mouth [Unknown]
  - Off label use [Unknown]
